FAERS Safety Report 24592607 (Version 1)
Quarter: 2024Q4

REPORT INFORMATION
  Report Type: Spontaneous
  Country: US (occurrence: US)
  Receive Date: 20241108
  Receipt Date: 20241108
  Transmission Date: 20250115
  Serious: No
  Sender: HANGZHOU MINSHENG BINJIANG PHARMA
  Company Number: US-Hangzhou Minsheng Binjiang Pharmaceutical Co., Ltd.-2164704

PATIENT
  Age: 60 Year
  Sex: Female
  Weight: 48.182 kg

DRUGS (1)
  1. ALENDRONATE SODIUM [Suspect]
     Active Substance: ALENDRONATE SODIUM
     Indication: Osteoporosis
     Dates: start: 20240629, end: 20240717

REACTIONS (2)
  - Bone pain [Not Recovered/Not Resolved]
  - Arthralgia [Not Recovered/Not Resolved]

NARRATIVE: CASE EVENT DATE: 20240717
